FAERS Safety Report 26082457 (Version 2)
Quarter: 2025Q4

REPORT INFORMATION
  Report Type: Spontaneous
  Country: TR (occurrence: TR)
  Receive Date: 20251124
  Receipt Date: 20251203
  Transmission Date: 20260117
  Serious: Yes (Other)
  Sender: NOVARTIS
  Company Number: TR-002147023-NVSC2025TR179401

PATIENT
  Age: 41 Year
  Sex: Female

DRUGS (4)
  1. CYCLOSPORINE [Suspect]
     Active Substance: CYCLOSPORINE
     Indication: Dermatomyositis
     Dosage: UNK
     Route: 065
  2. Immunoglobulin [Concomitant]
     Indication: Dermatomyositis
     Dosage: UNK
     Route: 042
  3. MYCOPHENOLATE MOFETIL [Concomitant]
     Active Substance: MYCOPHENOLATE MOFETIL
     Indication: Dermatomyositis
     Dosage: UNK
     Route: 065
  4. TOFACITINIB [Concomitant]
     Active Substance: TOFACITINIB
     Indication: Dermatomyositis
     Dosage: UNK
     Route: 065

REACTIONS (3)
  - Hyperkalaemia [Unknown]
  - Hypertension [Unknown]
  - Product use in unapproved indication [Unknown]
